FAERS Safety Report 21604472 (Version 1)
Quarter: 2022Q4

REPORT INFORMATION
  Report Type: Spontaneous
  Country: SK (occurrence: None)
  Receive Date: 20221116
  Receipt Date: 20221116
  Transmission Date: 20230113
  Serious: Yes (Other)
  Sender: FDA-Public Use
  Company Number: 2022A371643

PATIENT
  Age: 67 Year
  Sex: Female

DRUGS (6)
  1. OSIMERTINIB [Suspect]
     Active Substance: OSIMERTINIB
     Indication: Lung adenocarcinoma
     Route: 048
  2. AFATINIB [Concomitant]
     Active Substance: AFATINIB
     Route: 065
  3. CARBOPLATIN [Concomitant]
     Active Substance: CARBOPLATIN
     Route: 065
  4. ETOPOSIDE [Concomitant]
     Active Substance: ETOPOSIDE
     Route: 065
  5. TOPOTECAN [Concomitant]
     Active Substance: TOPOTECAN HYDROCHLORIDE
     Route: 065
  6. ERLOTINIB [Concomitant]
     Active Substance: ERLOTINIB
     Route: 065

REACTIONS (4)
  - Malignant neoplasm progression [Unknown]
  - Malignant transformation [Unknown]
  - EGFR gene mutation [Unknown]
  - Drug resistance [Unknown]
